FAERS Safety Report 13014012 (Version 1)
Quarter: 2016Q4

REPORT INFORMATION
  Report Type: Spontaneous
  Country: US (occurrence: US)
  Receive Date: 20161209
  Receipt Date: 20161209
  Transmission Date: 20170207
  Serious: No
  Sender: FDA-Public Use
  Company Number: US-BAYER-2015-112769

PATIENT
  Age: 84 Year
  Sex: Female
  Weight: 53.97 kg

DRUGS (11)
  1. AGGRENOX [Concomitant]
     Active Substance: ASPIRIN\DIPYRIDAMOLE
  2. DIGOXIN. [Concomitant]
     Active Substance: DIGOXIN
  3. MACROGOL 3350 [Suspect]
     Active Substance: POLYETHYLENE GLYCOL 3350
     Indication: PRODUCT USED FOR UNKNOWN INDICATION
     Dosage: UNK
     Dates: start: 2009, end: 2009
  4. ALLOPURINOL. [Concomitant]
     Active Substance: ALLOPURINOL
  5. SYNTHROID [Concomitant]
     Active Substance: LEVOTHYROXINE SODIUM
  6. DILANTIN [Concomitant]
     Active Substance: PHENYTOIN
  7. ANASTROZOLE. [Concomitant]
     Active Substance: ANASTROZOLE
  8. VALSARTAN. [Concomitant]
     Active Substance: VALSARTAN
  9. METROPOLYN [Concomitant]
  10. MACROGOL 3350 [Suspect]
     Active Substance: POLYETHYLENE GLYCOL 3350
     Indication: GASTROINTESTINAL DISORDER
     Dosage: UNK
     Route: 048
     Dates: start: 20130429
  11. COLACE [Concomitant]
     Active Substance: DOCUSATE SODIUM

REACTIONS (3)
  - Discomfort [Unknown]
  - Drug ineffective [Unknown]
  - Malaise [Unknown]
